FAERS Safety Report 20055973 (Version 2)
Quarter: 2022Q1

REPORT INFORMATION
  Report Type: Other
  Country: US (occurrence: None)
  Receive Date: 20211111
  Receipt Date: 20220327
  Transmission Date: 20220423
  Serious: No
  Sender: FDA-Public Use
  Company Number: US-ROCHE-2953386

PATIENT
  Sex: Female

DRUGS (6)
  1. OCREVUS [Suspect]
     Active Substance: OCRELIZUMAB
     Indication: Product used for unknown indication
     Dosage: UNKNOWN
     Route: 042
  2. LORATADINE [Concomitant]
     Active Substance: LORATADINE
  3. GABAPENTIN [Concomitant]
     Active Substance: GABAPENTIN
  4. ESCITALOPRAM [Concomitant]
     Active Substance: ESCITALOPRAM OXALATE
  5. SUMATRIPTAN [Concomitant]
     Active Substance: SUMATRIPTAN
  6. TOPIRAMATE [Concomitant]
     Active Substance: TOPIRAMATE

REACTIONS (4)
  - COVID-19 [Unknown]
  - Lumbar radiculopathy [Unknown]
  - Migraine [Unknown]
  - Hypoaesthesia [Unknown]
